FAERS Safety Report 18669476 (Version 1)
Quarter: 2020Q4

REPORT INFORMATION
  Report Type: Not Available
  Country: None (occurrence: None)
  Receive Date: 20201228
  Receipt Date: 20201228
  Transmission Date: 20210114
  Serious: No
  Sender: FDA-Public Use
  Company Number: US-AKORN-157366

PATIENT
  Age: 54 Year
  Sex: Female

DRUGS (1)
  1. FENTANYL CITRATE INJECTION, USP CII [Suspect]
     Active Substance: FENTANYL CITRATE

REACTIONS (1)
  - Drug hypersensitivity [Unknown]
